FAERS Safety Report 5145546-6 (Version None)
Quarter: 2006Q4

REPORT INFORMATION
  Report Type: 
  Country: None (occurrence: None)
  Receive Date: 20061101
  Receipt Date: 20061024
  Transmission Date: 20070319
  Serious: Yes (Other)
  Sender: FDA-Public Use
  Company Number: 230947

PATIENT
  Sex: Female

DRUGS (1)
  1. LUCENTIS [Suspect]

REACTIONS (5)
  - ANGINA PECTORIS [None]
  - ASTHENIA [None]
  - CONDITION AGGRAVATED [None]
  - FATIGUE [None]
  - NERVOUSNESS [None]
